FAERS Safety Report 5849875-X (Version None)
Quarter: 2008Q3

REPORT INFORMATION
  Report Type: 
  Country: None (occurrence: None)
  Receive Date: 20080818
  Receipt Date: 20080818
  Transmission Date: 20090109
  Serious: Yes (Other)
  Sender: FDA-Public Use
  Company Number: None

PATIENT
  Age: 8 Year
  Sex: Female
  Weight: 19.5047 kg

DRUGS (1)
  1. NASONEX [Suspect]
     Indication: MULTIPLE ALLERGIES
     Dosage: 1 PUFF EACH NOSTRIL ONCE DAILY NASAL
     Route: 045
     Dates: start: 20061229, end: 20080531

REACTIONS (7)
  - EAR PAIN [None]
  - EDUCATIONAL PROBLEM [None]
  - HEADACHE [None]
  - MALAISE [None]
  - OROPHARYNGEAL PAIN [None]
  - PSYCHOSOMATIC DISEASE [None]
  - STOMACH DISCOMFORT [None]
